FAERS Safety Report 5368199-0 (Version None)
Quarter: 2007Q2

REPORT INFORMATION
  Report Type: 
  Country: None (occurrence: None)
  Receive Date: 20070625
  Receipt Date: 20070619
  Transmission Date: 20071010
  Serious: Yes (Life-Threatening)
  Sender: FDA-Public Use
  Company Number: PHHO2007SG10166

PATIENT
  Age: 16 Year
  Sex: Male
  Weight: 45.5 kg

DRUGS (5)
  1. EXJADE [Suspect]
     Indication: HAEMOSIDEROSIS
     Dosage: 1000 MG, QD
     Route: 048
     Dates: end: 20070202
  2. EXJADE [Suspect]
     Dosage: 1000 MG, QD
     Route: 048
     Dates: start: 20060901
  3. LEVOTHYROXINE SODIUM [Concomitant]
     Indication: HYPOTHYROIDISM
     Dosage: 125 MG, QD
     Dates: start: 20060419
  4. CALTRATE [Concomitant]
     Dates: start: 20061102
  5. TESTOSTERONE [Concomitant]
     Indication: HYPOGONADISM
     Dosage: 100 MG, QMO
     Route: 030
     Dates: start: 20060914

REACTIONS (5)
  - CHEST PAIN [None]
  - COLD SWEAT [None]
  - CONCOMITANT DISEASE PROGRESSION [None]
  - CONGESTIVE CARDIOMYOPATHY [None]
  - DRUG INEFFECTIVE [None]
